FAERS Safety Report 19069765 (Version 1)
Quarter: 2021Q1

REPORT INFORMATION
  Report Type: Report from Study
  Country: CA (occurrence: CA)
  Receive Date: 20210329
  Receipt Date: 20210329
  Transmission Date: 20210420
  Serious: Yes (Hospitalization, Other)
  Sender: FDA-Public Use
  Company Number: CA-BAUSCH-BL-2021-009326

PATIENT
  Age: 62 Year
  Sex: Female

DRUGS (8)
  1. ESTRADIOL;MEDROXYPROGESTERONE [Concomitant]
     Active Substance: ESTRADIOL\MEDROXYPROGESTERONE
     Indication: PRODUCT USED FOR UNKNOWN INDICATION
     Route: 065
  2. ACYCLOVIR. [Suspect]
     Active Substance: ACYCLOVIR
     Indication: STOMATITIS
     Route: 065
  3. ACYCLOVIR. [Suspect]
     Active Substance: ACYCLOVIR
     Indication: GINGIVAL BLEEDING
     Route: 065
  4. CICLOSPORIN [Concomitant]
     Active Substance: CYCLOSPORINE
     Indication: PRODUCT USED FOR UNKNOWN INDICATION
     Route: 048
  5. ACYCLOVIR. [Suspect]
     Active Substance: ACYCLOVIR
     Indication: GINGIVITIS
     Route: 065
  6. ELTROMBOPAG OLAMINE [Suspect]
     Active Substance: ELTROMBOPAG OLAMINE
     Indication: APLASTIC ANAEMIA
     Route: 048
  7. BOTULINUM TOXIN TYPE A [Concomitant]
     Active Substance: BOTULINUM TOXIN TYPE A
     Indication: ACOUSTIC NEUROMA
     Dosage: CYCLICAL
     Route: 065
  8. PANTOPRAZOLE [Concomitant]
     Active Substance: PANTOPRAZOLE
     Indication: PRODUCT USED FOR UNKNOWN INDICATION
     Route: 048

REACTIONS (18)
  - Nausea [Unknown]
  - Cough [Unknown]
  - Dysphagia [Unknown]
  - Headache [Unknown]
  - Stomatitis [Unknown]
  - Haemoglobin decreased [Unknown]
  - Platelet count decreased [Unknown]
  - Dysphonia [Unknown]
  - Gingival bleeding [Unknown]
  - Chest discomfort [Unknown]
  - Dry mouth [Unknown]
  - Gingivitis [Unknown]
  - Gingival swelling [Unknown]
  - Heart rate increased [Unknown]
  - Urinary tract infection [Unknown]
  - Influenza [Unknown]
  - Malaise [Unknown]
  - Pyrexia [Unknown]
